FAERS Safety Report 14239829 (Version 1)
Quarter: 2017Q4

REPORT INFORMATION
  Report Type: Spontaneous
  Country: US (occurrence: US)
  Receive Date: 20171128
  Receipt Date: 20171128
  Transmission Date: 20180321
  Serious: No
  Sender: FDA-Public Use
  Company Number: None

PATIENT
  Age: 62 Year
  Sex: Female

DRUGS (7)
  1. HYDROCHLOROTHIAZIDE. [Concomitant]
     Active Substance: HYDROCHLOROTHIAZIDE
  2. AMLODIPINE [Concomitant]
     Active Substance: AMLODIPINE BESYLATE
  3. DICLOFENAC [Concomitant]
     Active Substance: DICLOFENAC
  4. GOODYS [Concomitant]
     Active Substance: ACETAMINOPHEN\ASPIRIN\CAFFEINE
  5. LUVOX [Concomitant]
     Active Substance: FLUVOXAMINE MALEATE
  6. PAROXETINE. [Concomitant]
     Active Substance: PAROXETINE
  7. IMATINIB [Suspect]
     Active Substance: IMATINIB
     Indication: GASTRIC NEOPLASM
     Route: 048
     Dates: start: 20170609, end: 20171128

REACTIONS (1)
  - Diarrhoea [None]

NARRATIVE: CASE EVENT DATE: 20171128
